FAERS Safety Report 6192136-2 (Version None)
Quarter: 2009Q2

REPORT INFORMATION
  Report Type: 
  Country: None (occurrence: None)
  Receive Date: 20090515
  Receipt Date: 20090507
  Transmission Date: 20091009
  Serious: Yes (Other)
  Sender: FDA-Public Use
  Company Number: JP-PFIZER INC-2009212323

PATIENT

DRUGS (2)
  1. CELECOXIB [Suspect]
     Indication: OSTEOARTHRITIS
     Dosage: 100 MCI, 1X/DAY
     Route: 048
     Dates: end: 20090501
  2. ARTZ [Concomitant]

REACTIONS (1)
  - SKIN EROSION [None]
